FAERS Safety Report 7587191-9 (Version None)
Quarter: 2011Q3

REPORT INFORMATION
  Report Type: 
  Country: None (occurrence: None)
  Receive Date: 20110701
  Receipt Date: 20110615
  Transmission Date: 20111222
  Serious: Yes (Other)
  Sender: FDA-Public Use
  Company Number: CHNY2011JP00453

PATIENT
  Age: 71 Year
  Sex: Male
  Weight: 51 kg

DRUGS (8)
  1. HERBALIFE PRODUCTS [Suspect]
     Indication: DYSCHEZIA
     Dosage: 9 DF, QD
     Route: 048
  2. DAIKENTYUTO [Suspect]
     Indication: DYSCHEZIA
     Dosage: 15 G, QD
     Route: 048
  3. TELEMINSOFT [Suspect]
     Indication: DYSCHEZIA
     Dosage: 1 DF, QD
     Route: 054
  4. MAGNESIUM OXIDE [Suspect]
     Indication: DYSCHEZIA
     Dosage: 3 G, QD
     Route: 048
  5. PANPYOTIN [Suspect]
     Indication: DYSCHEZIA
     Dosage: 6 G, QD
     Route: 048
  6. SHINLUCK [Suspect]
     Indication: DYSCHEZIA
     Dosage: 20 DROPS
     Route: 048
  7. PURSENNID [Suspect]
     Indication: DYSCHEZIA
     Dosage: 48 MG (4 TABLETS), QD
     Route: 048
  8. GLYCERIN [Suspect]
     Indication: DYSCHEZIA
     Dosage: 30 MG (60 ML ENEMA), QD
     Route: 054

REACTIONS (8)
  - VASODILATATION [None]
  - TONGUE DISORDER [None]
  - ILEUS [None]
  - PULSE ABNORMAL [None]
  - GASTROINTESTINAL SOUNDS ABNORMAL [None]
  - DRUG INEFFECTIVE FOR UNAPPROVED INDICATION [None]
  - GASTROINTESTINAL HYPOMOTILITY [None]
  - FAECAL VOLUME INCREASED [None]
